FAERS Safety Report 14141252 (Version 1)
Quarter: 2017Q4

REPORT INFORMATION
  Report Type: Spontaneous
  Country: GB (occurrence: GB)
  Receive Date: 20171030
  Receipt Date: 20171030
  Transmission Date: 20180321
  Serious: Yes (Death, Other)
  Sender: FDA-Public Use
  Company Number: GB-PFIZER INC-2017466065

PATIENT
  Age: 73 Year

DRUGS (2)
  1. AXITINIB [Suspect]
     Active Substance: AXITINIB
     Dosage: 3 MG, 2X/DAY
     Dates: start: 20140217
  2. AXITINIB [Suspect]
     Active Substance: AXITINIB
     Indication: RENAL CANCER
     Dosage: 5 MG, 2X/DAY
     Dates: start: 20130926, end: 20140107

REACTIONS (6)
  - Death [Fatal]
  - Cardiac arrest [Unknown]
  - Neoplasm progression [Unknown]
  - Myocardial infarction [Unknown]
  - Coronary artery disease [Unknown]
  - Flank pain [Unknown]

NARRATIVE: CASE EVENT DATE: 20140107
